FAERS Safety Report 7545111-7 (Version None)
Quarter: 2011Q2

REPORT INFORMATION
  Report Type: 
  Country: None (occurrence: None)
  Receive Date: 20110606
  Receipt Date: 20110520
  Transmission Date: 20111010
  Serious: Yes (Death, Hospitalization)
  Sender: FDA-Public Use
  Company Number: NAP-11-08

PATIENT
  Age: 60 Year
  Sex: Female

DRUGS (3)
  1. METOPROLOL TARTRATE [Concomitant]
  2. NAPROXEN [Suspect]
  3. AMLODIPINE [Concomitant]

REACTIONS (4)
  - HYPOTENSION [None]
  - INCORRECT DOSE ADMINISTERED [None]
  - HAEMODIALYSIS [None]
  - BLOOD PH DECREASED [None]
